FAERS Safety Report 7312360-2 (Version None)
Quarter: 2011Q1

REPORT INFORMATION
  Report Type: 
  Country: None (occurrence: None)
  Receive Date: 20110224
  Receipt Date: 20110214
  Transmission Date: 20110831
  Serious: Yes (Hospitalization)
  Sender: FDA-Public Use
  Company Number: DE-TEVA-267543GER

PATIENT
  Age: 51 Year
  Sex: Male

DRUGS (5)
  1. CYCLOPHOSPHAMIDE [Suspect]
     Indication: B-CELL LYMPHOMA
  2. DOXORUBICIN [Suspect]
     Indication: B-CELL LYMPHOMA
  3. VINCRISTINE [Suspect]
     Indication: B-CELL LYMPHOMA
  4. PREDNISOLONE [Suspect]
     Indication: B-CELL LYMPHOMA
  5. RITUXIMAB [Suspect]
     Indication: B-CELL LYMPHOMA

REACTIONS (3)
  - HAEMATOCHEZIA [None]
  - ABDOMINAL PAIN LOWER [None]
  - COLITIS ISCHAEMIC [None]
